FAERS Safety Report 7971153-3 (Version None)
Quarter: 2011Q4

REPORT INFORMATION
  Report Type: 
  Country: None (occurrence: None)
  Receive Date: 20111122
  Receipt Date: 20110627
  Transmission Date: 20120403
  Serious: Yes (Other)
  Sender: FDA-Public Use
  Company Number: PHHY2011US53559

PATIENT
  Age: 55 Year
  Sex: Female

DRUGS (6)
  1. HORMONES (HORMONES) [Concomitant]
  2. GILENYA [Suspect]
     Indication: MULTIPLE SCLEROSIS
     Dosage: 0.5 MG, DAILY, ORAL
     Route: 048
     Dates: start: 20110615
  3. LIPITOR [Concomitant]
  4. ZOFRAN [Concomitant]
  5. TOPAMAX [Concomitant]
  6. LAMICTAL [Concomitant]

REACTIONS (6)
  - HYPOAESTHESIA [None]
  - HEADACHE [None]
  - DYSPNOEA [None]
  - HEART RATE DECREASED [None]
  - CHEST DISCOMFORT [None]
  - DIZZINESS [None]
